FAERS Safety Report 9890473 (Version 2)
Quarter: 2014Q1

REPORT INFORMATION
  Report Type: Report from Study
  Country: US (occurrence: US)
  Receive Date: 20140212
  Receipt Date: 20140305
  Transmission Date: 20141002
  Serious: Yes (Other)
  Sender: FDA-Public Use
  Company Number: US-ASTRAZENECA-2014SE08170

PATIENT
  Age: 62 Year
  Sex: Male
  Weight: 95.3 kg

DRUGS (9)
  1. SEROQUEL XR [Suspect]
     Indication: DEPRESSION
     Route: 048
     Dates: start: 2012
  2. SEROQUEL XR [Suspect]
     Indication: DEPRESSION
     Route: 048
     Dates: start: 20140131, end: 20140201
  3. WELLBUTRIN [Concomitant]
     Indication: DEPRESSION
     Route: 048
     Dates: start: 2013
  4. EPLERENONE [Concomitant]
     Indication: DIURETIC THERAPY
     Route: 048
     Dates: start: 201307
  5. FUROSEMIDE [Concomitant]
     Indication: DIURETIC THERAPY
     Route: 048
     Dates: start: 201307
  6. AZITHROMYCIN [Concomitant]
     Indication: OROPHARYNGEAL PAIN
     Route: 048
     Dates: start: 20140131
  7. AZITHROMYCIN [Concomitant]
     Indication: INFLUENZA LIKE ILLNESS
     Route: 048
     Dates: start: 20140131
  8. AZITHROMYCIN [Concomitant]
     Indication: OROPHARYNGEAL PAIN
     Route: 048
     Dates: start: 20140201, end: 20140203
  9. AZITHROMYCIN [Concomitant]
     Indication: INFLUENZA LIKE ILLNESS
     Route: 048
     Dates: start: 20140201, end: 20140203

REACTIONS (11)
  - VIIth nerve paralysis [Recovered/Resolved]
  - Dizziness [Unknown]
  - Fatigue [Unknown]
  - Pulmonary oedema [Unknown]
  - Ascites [Unknown]
  - Liver disorder [Unknown]
  - Cough [Unknown]
  - Depression [Unknown]
  - Nausea [Unknown]
  - Therapy cessation [Unknown]
  - Intentional drug misuse [Unknown]
